FAERS Safety Report 8823390 (Version 1)
Quarter: 2012Q4

REPORT INFORMATION
  Report Type: 
  Country: US (occurrence: US)
  Receive Date: 20121003
  Receipt Date: 20121003
  Transmission Date: 20130627
  Serious: Yes (Other)
  Sender: FDA-Public Use
  Company Number: US-ASTRAZENECA-2012SE74320

PATIENT
  Age: 57 Year
  Sex: Female

DRUGS (20)
  1. OMEPRAZOLE [Suspect]
     Route: 048
     Dates: start: 20110928
  2. TAXOL [Suspect]
     Route: 065
     Dates: end: 20120228
  3. FULVESTRANT [Concomitant]
     Dosage: MONTHLY
     Route: 030
     Dates: start: 20120522
  4. AC [Concomitant]
     Dates: start: 20110919
  5. DOXORUBICIN [Concomitant]
     Dosage: 528 MG, IVP, WITH MAXIMUM LIFE TIME DOSE OF 856 MG
  6. ATIVAN [Concomitant]
     Indication: ANXIETY
     Dosage: 0.5 MG, EVERY 8 HOURS, AS NEEDED
     Route: 048
     Dates: start: 20111011
  7. CELEXA [Concomitant]
     Route: 048
     Dates: start: 20110923
  8. DEXAMETHASONE [Concomitant]
     Dosage: 1 DF, TWICE DAILY FOR DAYS 2 AND 3 OF EACH CHEMOTHERAPY
     Route: 048
     Dates: start: 20110909
  9. EMEND [Concomitant]
     Dosage: 125 MG+80MG, TAKES AS DIRECTED ON PACKAGE
     Dates: start: 20110909
  10. HYDROCODONE-ACETAMINOPHEN [Concomitant]
     Indication: PAIN
     Dosage: 7.5 MG/500 MG, 1 TABLET, EVERY FOUR HOURS, AS NEEDED
     Route: 048
     Dates: start: 20120315, end: 20120424
  11. HYDROCODONE-ACETAMINOPHEN [Concomitant]
     Indication: PAIN
     Dosage: 7.5 MG/500 MG, 1 TABLET, EVERY SIX HOURS, AS NEEDED
     Route: 048
     Dates: start: 20120424
  12. LETROZOLE [Concomitant]
     Route: 048
     Dates: start: 20120327, end: 20120424
  13. MUCINEX [Concomitant]
     Dosage: 1 TABLET, TWICE DAILY, FOR 10 DAYS
     Route: 048
     Dates: start: 20120222
  14. NAPROXEN [Concomitant]
     Route: 048
     Dates: start: 20110817
  15. ONDANSETRON HCL [Concomitant]
     Indication: NAUSEA
     Dosage: 8 MG, THREE TIMES A DAY, AS NEEDED
     Route: 048
     Dates: start: 20110909
  16. OXYCODONE [Concomitant]
     Dosage: 5 MG, FOUR TIMES A DAY, AS NEEDED
     Route: 048
     Dates: start: 20120327, end: 20120424
  17. OXYCODONE [Concomitant]
     Dosage: 5 MG, EVERY SIX HOURS, AS NEEDED
     Route: 048
     Dates: start: 20120424
  18. ROBAXIN [Concomitant]
     Dates: start: 20120214
  19. TRAZODONE [Concomitant]
     Dates: start: 20110817
  20. VITAMIN D [Concomitant]
     Dosage: 50000 UNITS, TWICE A WEK FOR 12 WEEKS ONLY
     Route: 048
     Dates: start: 20120304

REACTIONS (5)
  - Lung neoplasm [Unknown]
  - Sinusitis [Unknown]
  - Cough [Unknown]
  - Dehydration [Unknown]
  - Nausea [Unknown]
